FAERS Safety Report 9200423 (Version 1)
Quarter: 2013Q1

REPORT INFORMATION
  Report Type: Spontaneous
  Country: FR (occurrence: FR)
  Receive Date: 20130329
  Receipt Date: 20130329
  Transmission Date: 20140127
  Serious: Yes (Hospitalization)
  Sender: FDA-Public Use
  Company Number: FR-PFIZER INC-2007330218

PATIENT
  Age: 24 Year
  Sex: Female

DRUGS (4)
  1. IBUPROFEN [Suspect]
     Indication: MALAISE
     Route: 065
  2. PARACETAMOL [Concomitant]
     Route: 065
  3. ALPRAZOLAM [Concomitant]
     Indication: DEPRESSION
     Route: 065
  4. ESCITALOPRAM [Concomitant]
     Indication: DEPRESSION
     Route: 065

REACTIONS (2)
  - Alveolitis allergic [Recovered/Resolved]
  - Acute respiratory failure [Recovered/Resolved]
